FAERS Safety Report 18621328 (Version 2)
Quarter: 2020Q4

REPORT INFORMATION
  Report Type: Spontaneous
  Country: HR (occurrence: HR)
  Receive Date: 20201215
  Receipt Date: 20201228
  Transmission Date: 20210114
  Serious: Yes (Hospitalization, Other)
  Sender: FDA-Public Use
  Company Number: HR-US-PROVELL PHARMACEUTICALS LLC-E2B_90081539

PATIENT
  Age: 47 Year
  Sex: Female
  Weight: 80 kg

DRUGS (4)
  1. EUTHYROX [Suspect]
     Active Substance: LEVOTHYROXINE SODIUM
     Indication: THYROIDITIS CHRONIC
     Route: 048
     Dates: start: 20190924, end: 20191211
  2. EUTHYROX [Suspect]
     Active Substance: LEVOTHYROXINE SODIUM
     Dosage: ALTERNATIVE DAYS
     Route: 048
     Dates: start: 20191213, end: 20200630
  3. DIAZEPAM. [Concomitant]
     Active Substance: DIAZEPAM
     Indication: PRODUCT USED FOR UNKNOWN INDICATION
     Route: 048
  4. EUTHYROX [Suspect]
     Active Substance: LEVOTHYROXINE SODIUM
     Dosage: ADR NOT ADEQUATELY LABELLED: INCREASED BLOOD PRESSURE, DRUG INEFFECTIVE.?ALTERNATIVE DAYS
     Route: 048
     Dates: start: 20191212, end: 20200630

REACTIONS (5)
  - Tachycardia [Recovered/Resolved]
  - Drug ineffective [Recovered/Resolved]
  - Anti-thyroid antibody positive [Recovered/Resolved]
  - Blood thyroid stimulating hormone increased [Recovered/Resolved]
  - Blood pressure increased [Recovered/Resolved]

NARRATIVE: CASE EVENT DATE: 2020
